FAERS Safety Report 9081752 (Version 2)
Quarter: 2013Q1

REPORT INFORMATION
  Report Type: Spontaneous
  Country: US (occurrence: US)
  Receive Date: 20130131
  Receipt Date: 20130301
  Transmission Date: 20140127
  Serious: Yes (Other)
  Sender: FDA-Public Use
  Company Number: US-JNJFOC-20130111609

PATIENT
  Sex: Male
  Weight: 100.7 kg

DRUGS (35)
  1. REMICADE [Suspect]
     Indication: RHEUMATOID ARTHRITIS
     Route: 042
     Dates: start: 20130222
  2. REMICADE [Suspect]
     Indication: RHEUMATOID ARTHRITIS
     Dosage: 69 INFUSIONS
     Route: 042
     Dates: start: 20030916
  3. REMICADE [Suspect]
     Indication: RHEUMATOID ARTHRITIS
     Route: 042
     Dates: start: 201001, end: 20121031
  4. REMICADE [Suspect]
     Indication: RHEUMATOID ARTHRITIS
     Route: 042
     Dates: start: 200310, end: 200910
  5. REMICADE [Suspect]
     Indication: RHEUMATOID ARTHRITIS
     Route: 042
     Dates: start: 2005
  6. ALENDRONATE [Concomitant]
     Dosage: EMPTY STOMACH 30 MINUTES BEFORE FOOD
     Route: 048
  7. LIPITOR [Concomitant]
     Dosage: 20 (UNITS UNSPECIFIED)
     Route: 065
  8. LASIX [Concomitant]
     Dosage: MORNING
     Route: 065
  9. VICODIN [Concomitant]
     Indication: PAIN
     Dosage: 5/500 MG 1-2 TABLETS, EVERY 4-6 PRN
     Route: 065
  10. ARAVA [Concomitant]
     Route: 048
  11. TOPROL XL [Concomitant]
     Dosage: SUSTAINED RELEASE 24 HOURS
     Route: 065
  12. NIASPAN [Concomitant]
     Route: 065
  13. ASPIRIN [Concomitant]
     Route: 065
  14. NEURONTIN [Concomitant]
     Dosage: AT BED TIME
     Route: 048
  15. NEURONTIN [Concomitant]
     Route: 048
  16. HYDROCODONE-ACETAMINOPHEN [Concomitant]
     Dosage: 5-325 MG 1 OR 2 TABLETS EVERY 4 TO 6 HOURS AS NEEDED
     Route: 048
  17. LATANOPROST [Concomitant]
     Dosage: 1 DROP IN BOTH EYES DAILY AT BEDTIME
     Route: 047
  18. KLORCON [Concomitant]
     Route: 065
  19. RITUXAN [Concomitant]
     Route: 042
  20. CALCIUM CARBONATE-VITAMIN D [Concomitant]
     Route: 065
  21. AZITHROMYCIN [Concomitant]
     Dosage: FIRST DAY 2 TABLETS, THEN 1 TABLET DAILY
     Route: 048
  22. PROPOXYPHENE AND ACETAMINOPHEN [Concomitant]
     Dosage: 100-650 MG
     Route: 048
  23. ACETAMINOPHEN [Concomitant]
     Dosage: 2 CAPSULES EVERY 4 TO 6 HOURS
     Route: 065
  24. ACETAMINOPHEN-CODEINE [Concomitant]
     Dosage: 300-30 MG TABLET 4 TO 6 HOURS AS NEEDED
     Route: 048
  25. VITAMIN C [Concomitant]
     Route: 065
  26. CALTRATE [Concomitant]
     Route: 065
  27. VITAMIN B-12 [Concomitant]
     Route: 065
  28. ACETAMINOPHEN DIPHENHYDRAMINE [Concomitant]
     Dosage: 25-500 MG TABLET DAILY AT BED TIME
     Route: 065
  29. NEXIUM [Concomitant]
     Route: 048
  30. FOLIC ACID [Concomitant]
     Route: 048
  31. COSAMIN DS [Concomitant]
     Dosage: 500-400 MG
     Route: 065
  32. ADVIL [Concomitant]
     Dosage: AS NEEDED
     Route: 065
  33. LIDODERM [Concomitant]
     Dosage: 5% 700 MG/PATCH
     Route: 061
  34. METHOTREXATE SODIUM [Concomitant]
     Route: 048
  35. PREDNISONE [Concomitant]
     Route: 065

REACTIONS (6)
  - Sarcoma [Unknown]
  - Osteoporosis [Unknown]
  - Osteopenia [Unknown]
  - Lyme disease [Unknown]
  - Osteonecrosis [Unknown]
  - Rheumatoid arthritis [Unknown]
